FAERS Safety Report 6071478-5 (Version None)
Quarter: 2009Q1

REPORT INFORMATION
  Report Type: 
  Country: None (occurrence: None)
  Receive Date: 20090210
  Receipt Date: 20090128
  Transmission Date: 20090719
  Serious: Yes (Other)
  Sender: FDA-Public Use
  Company Number: AT-RANBAXY-2009RR-21604

PATIENT
  Sex: Male
  Weight: 80 kg

DRUGS (6)
  1. ISOTRETINOIN [Suspect]
     Indication: SUICIDE ATTEMPT
     Dosage: 800 MG, UNK
  2. OXAZEPAM [Suspect]
     Indication: SUICIDE ATTEMPT
     Dosage: 500 MG, UNK
  3. DOXEPIHYDROCHLORIDE [Suspect]
     Indication: SUICIDE ATTEMPT
     Dosage: 450 MG, UNK
  4. METHYLPREDNISOLONE [Suspect]
     Indication: SUICIDE ATTEMPT
     Dosage: 60 MG, UNK
  5. ERYTHROMYCIN [Suspect]
     Indication: SUICIDE ATTEMPT
     Dosage: 5 G, UNK
  6. ISOTRETINOIN [Concomitant]
     Indication: ACNE
     Dosage: 60 MG, UNK

REACTIONS (5)
  - APHASIA [None]
  - BACK PAIN [None]
  - HEADACHE [None]
  - OVERDOSE [None]
  - PRURITUS [None]
